FAERS Safety Report 21865371 (Version 1)
Quarter: 2023Q1

REPORT INFORMATION
  Report Type: Spontaneous
  Country: US (occurrence: US)
  Receive Date: 20230116
  Receipt Date: 20230116
  Transmission Date: 20230418
  Serious: No
  Sender: FDA-Public Use
  Company Number: US-ABBVIE-4267077

PATIENT
  Sex: Female
  Weight: 83.914 kg

DRUGS (2)
  1. SKYRIZI [Suspect]
     Active Substance: RISANKIZUMAB-RZAA
     Indication: Psoriasis
     Route: 058
     Dates: start: 2020
  2. MYRBETRIQ [Concomitant]
     Active Substance: MIRABEGRON
     Indication: Incontinence

REACTIONS (3)
  - Pain in extremity [Not Recovered/Not Resolved]
  - Injection site pruritus [Recovered/Resolved]
  - Joint range of motion decreased [Not Recovered/Not Resolved]

NARRATIVE: CASE EVENT DATE: 20220101
